FAERS Safety Report 7500105-2 (Version None)
Quarter: 2011Q2

REPORT INFORMATION
  Report Type: 
  Country: None (occurrence: None)
  Receive Date: 20110524
  Receipt Date: 20110517
  Transmission Date: 20111010
  Serious: Yes (Death, Life-Threatening, Hospitalization)
  Sender: FDA-Public Use
  Company Number: DE-ELI_LILLY_AND_COMPANY-10-11-00141

PATIENT
  Sex: Male
  Weight: 52.5 kg

DRUGS (17)
  1. GEMCITABINE HYDROCHLORIDE [Suspect]
     Indication: NON-SMALL CELL LUNG CANCER
     Dosage: 2000 MG, UNK
     Route: 042
     Dates: start: 20100617
  2. CISPLATIN [Suspect]
     Indication: NON-SMALL CELL LUNG CANCER
     Dosage: 120 MG, UNK
     Route: 042
     Dates: start: 20100617
  3. PSORCUTAN [Concomitant]
     Indication: PSORIATIC ARTHROPATHY
     Dosage: UNK, UNK
     Dates: start: 19760101
  4. ATARAX [Concomitant]
     Indication: PRURITUS
     Dosage: UNK, UNK
     Dates: start: 19760101
  5. MACROGOL [Concomitant]
     Indication: CONSTIPATION
     Dates: start: 20100620, end: 20100627
  6. NALOXON [Concomitant]
     Indication: PAIN
     Dates: start: 20100620, end: 20100620
  7. METHOTREXATE [Concomitant]
     Indication: PSORIATIC ARTHROPATHY
     Dates: start: 20100622
  8. DICLOFENAC SODIUM [Concomitant]
     Indication: PAIN
     Dates: start: 19960101
  9. TRAMADOL HCL [Concomitant]
     Indication: PAIN
     Dates: start: 20100616
  10. CERNEVIT-12 [Concomitant]
     Indication: VITAMIN SUPPLEMENTATION
     Dates: start: 20100628, end: 20100629
  11. AMPHOTERICIN B [Concomitant]
     Indication: STOMATITIS
     Dates: start: 20100511
  12. MORPHIN                            /00036303/ [Concomitant]
     Indication: PAIN
     Route: 042
     Dates: start: 20100618
  13. POVIDONE IODINE [Concomitant]
     Indication: ERYTHEMA MULTIFORME
     Dates: start: 20100626, end: 20100629
  14. METAMIZOLE [Concomitant]
     Indication: PAIN
     Route: 042
     Dates: start: 20100511
  15. AREDIA [Concomitant]
     Indication: PSORIATIC ARTHROPATHY
     Dates: start: 20100618, end: 20100618
  16. STRUCTOKABIVEN                     /05981101/ [Concomitant]
     Indication: PARENTERAL NUTRITION
     Route: 042
     Dates: start: 20100628, end: 20100629
  17. LOPERAMIDE [Concomitant]
     Indication: DIARRHOEA
     Route: 042
     Dates: start: 20100627, end: 20100628

REACTIONS (3)
  - NEUTROPENIC SEPSIS [None]
  - LEUKOPENIA [None]
  - GENERAL PHYSICAL HEALTH DETERIORATION [None]
